FAERS Safety Report 25915382 (Version 1)
Quarter: 2025Q4

REPORT INFORMATION
  Report Type: Spontaneous
  Country: US (occurrence: US)
  Receive Date: 20251013
  Receipt Date: 20251013
  Transmission Date: 20260118
  Serious: No
  Sender: ANI
  Company Number: US-ANIPHARMA-2025-US-036468

PATIENT
  Sex: Male

DRUGS (1)
  1. CORTICOTROPIN [Suspect]
     Active Substance: CORTICOTROPIN
     Indication: Product used for unknown indication
     Dosage: TWICE WEEKLY
     Route: 058
     Dates: start: 20250128, end: 20250618

REACTIONS (3)
  - Blood glucose increased [Unknown]
  - Abnormal weight gain [Recovered/Resolved]
  - Glucose tolerance impaired [Not Recovered/Not Resolved]
